FAERS Safety Report 9782520 (Version 2)
Quarter: 2013Q4

REPORT INFORMATION
  Report Type: Report from Study
  Country: US (occurrence: US)
  Receive Date: 20131226
  Receipt Date: 20131226
  Transmission Date: 20140711
  Serious: Yes (Other)
  Sender: FDA-Public Use
  Company Number: US-ROCHE-1317890

PATIENT
  Sex: Female

DRUGS (7)
  1. AVASTIN [Suspect]
     Indication: PRODUCT USED FOR UNKNOWN INDICATION
     Route: 050
  2. METFORMIN [Concomitant]
     Indication: DIABETES MELLITUS
     Route: 065
  3. GLIMEPIRIDE [Concomitant]
     Indication: DIABETES MELLITUS
     Route: 065
  4. LISINOPRIL [Concomitant]
     Indication: BLOOD PRESSURE
     Dosage: AT NIGHT
     Route: 065
  5. SIMVASTATIN [Concomitant]
     Indication: BLOOD CHOLESTEROL
     Dosage: AT NIGHT
     Route: 065
  6. NORTRIPTYLINE [Concomitant]
     Dosage: AT NIGHT
     Route: 065
  7. ESCITALOPRAM [Concomitant]
     Indication: ANXIETY
     Dosage: IN MORNING, IF NEEDED.
     Route: 065

REACTIONS (4)
  - Eye irritation [Unknown]
  - Paraesthesia [Recovered/Resolved]
  - Visual impairment [Recovered/Resolved]
  - Ocular discomfort [Recovered/Resolved]
